FAERS Safety Report 9247289 (Version 3)
Quarter: 2013Q4

REPORT INFORMATION
  Report Type: Spontaneous
  Country: FR (occurrence: FR)
  Receive Date: 20130423
  Receipt Date: 20131125
  Transmission Date: 20140711
  Serious: Yes (Hospitalization, Other)
  Sender: FDA-Public Use
  Company Number: FR-RANBAXY-2013RR-68120

PATIENT
  Age: 75 Year
  Sex: Female

DRUGS (5)
  1. SERTRALINE [Suspect]
     Indication: DEPRESSION
     Dosage: 50 MG/DAY
     Route: 065
  2. SERTRALINE [Interacting]
     Indication: DEPRESSION
     Dosage: 100 MG/DAY
     Route: 065
  3. RASAGILINE [Interacting]
     Indication: PARKINSON^S DISEASE
     Dosage: 1 MG/DAY
     Route: 065
  4. AMANTADINE [Interacting]
     Indication: PARKINSON^S DISEASE
     Dosage: 100 MG, BID
     Route: 065
  5. LEVODOPA/CARBIDOPA/ENTACAPONE [Suspect]
     Indication: PARKINSON^S DISEASE
     Dosage: 200 MG/50 MG/200 MG THREE TIMES DAILY
     Route: 065

REACTIONS (3)
  - Serotonin syndrome [Recovered/Resolved]
  - Drug interaction [Recovered/Resolved]
  - Labelled drug-drug interaction medication error [Recovered/Resolved]
